FAERS Safety Report 4709984-5 (Version None)
Quarter: 2005Q3

REPORT INFORMATION
  Report Type: 
  Country: None (occurrence: None)
  Receive Date: 20050708
  Receipt Date: 20050628
  Transmission Date: 20060218
  Serious: Yes (Death, Other)
  Sender: FDA-Public Use
  Company Number: 200516026GDDC

PATIENT
  Age: 75 Year
  Sex: Female

DRUGS (13)
  1. ARAVA [Suspect]
     Indication: RHEUMATOID ARTHRITIS
     Route: 048
  2. LISINOPRIL [Suspect]
     Indication: HYPERTENSION
     Dosage: DOSE: UNK
     Route: 048
  3. ASPIRIN [Concomitant]
     Dosage: DOSE: UNK
  4. ATORVASTATIN CALCIUM [Concomitant]
     Dosage: DOSE: UNK
     Dates: start: 19990101
  5. BUDESONIDE [Concomitant]
     Dosage: DOSE: UNK
  6. DILTIAZEM [Concomitant]
     Dosage: DOSE: UNK
  7. FENTANYL [Concomitant]
     Dosage: DOSE: UNK
  8. LANSOPRAZOLE [Concomitant]
     Dosage: DOSE: UNK
  9. MIDAZOLAM HCL [Concomitant]
     Dosage: DOSE: UNK
  10. PROPOFOL [Concomitant]
     Dosage: DOSE: UNK
  11. NITROGLYCERIN [Concomitant]
     Dosage: DOSE: UNK
  12. PANCURONIUM BROMIDE [Concomitant]
     Dosage: DOSE: UNK
  13. QUININE SULFATE [Concomitant]
     Dosage: DOSE: UNK

REACTIONS (17)
  - ACTIVATED PARTIAL THROMBOPLASTIN TIME PROLONGED [None]
  - COAGULOPATHY [None]
  - CORONARY ARTERY DISEASE [None]
  - GASTRIC ULCER [None]
  - GASTROINTESTINAL HAEMORRHAGE [None]
  - HAEMATEMESIS [None]
  - HAEMODIALYSIS [None]
  - HEPATIC CONGESTION [None]
  - HEPATIC FAILURE [None]
  - HEPATIC INFARCTION [None]
  - HEPATORENAL SYNDROME [None]
  - HYPERAEMIA [None]
  - HYPOVOLAEMIA [None]
  - LABILE BLOOD PRESSURE [None]
  - POST PROCEDURAL HAEMORRHAGE [None]
  - RENAL FAILURE [None]
  - ULCER [None]
